FAERS Safety Report 15557556 (Version 1)
Quarter: 2018Q4

REPORT INFORMATION
  Report Type: Spontaneous
  Country: FR (occurrence: FR)
  Receive Date: 20181027
  Receipt Date: 20181027
  Transmission Date: 20190205
  Serious: Yes (Hospitalization)
  Sender: FDA-Public Use
  Company Number: FR-ROCHE-2205559

PATIENT
  Age: 31 Year
  Sex: Female
  Weight: 38 kg

DRUGS (4)
  1. NAPROXEN. [Suspect]
     Active Substance: NAPROXEN
     Indication: PHARYNGITIS
     Route: 048
     Dates: start: 20180917, end: 20180921
  2. MABTHERA [Suspect]
     Active Substance: RITUXIMAB
     Indication: SYSTEMIC LUPUS ERYTHEMATOSUS
     Dosage: THIS WAS THE MOST RECENT DOSE OF RITUXIMAB
     Route: 041
     Dates: start: 20180605
  3. CEFPODOXIME [Suspect]
     Active Substance: CEFPODOXIME
     Indication: PHARYNGITIS
     Route: 048
     Dates: start: 20180920, end: 20180921
  4. AZITHROMYCIN ANHYDROUS. [Suspect]
     Active Substance: AZITHROMYCIN ANHYDROUS
     Indication: PHARYNGITIS
     Dosage: ON 20/SEP/2018, THE PATIENT RECEIVED MOST RECENT DOSE OF AZITHROMYCIN.
     Route: 048
     Dates: start: 20180917

REACTIONS (1)
  - Agranulocytosis [Recovered/Resolved]

NARRATIVE: CASE EVENT DATE: 20180921
